FAERS Safety Report 7017802-8 (Version None)
Quarter: 2010Q3

REPORT INFORMATION
  Report Type: 
  Country: None (occurrence: None)
  Receive Date: 20100927
  Receipt Date: 20100927
  Transmission Date: 20110219
  Serious: Yes (Life-Threatening, Disabling)
  Sender: FDA-Public Use
  Company Number: None

PATIENT
  Sex: Male
  Weight: 72.5755 kg

DRUGS (2)
  1. PERPHENAZINE [Suspect]
     Indication: INSOMNIA
     Dosage: 8 MG BEDTIME 108660053600
     Dates: start: 19890101
  2. DIPHENHYDRAMINE HCL [Suspect]
     Indication: INSOMNIA
     Dosage: 25 MG BEDTIME 1037575R
     Dates: start: 19890101

REACTIONS (2)
  - CEREBRAL DISORDER [None]
  - DARK CIRCLES UNDER EYES [None]
